FAERS Safety Report 26127509 (Version 1)
Quarter: 2025Q4

REPORT INFORMATION
  Report Type: Spontaneous
  Country: JP (occurrence: JP)
  Receive Date: 20251205
  Receipt Date: 20251205
  Transmission Date: 20260117
  Serious: Yes (Other)
  Sender: AMGEN
  Company Number: JP-DSJP-DS-2025-176992-

PATIENT
  Age: 56 Year
  Sex: Female

DRUGS (4)
  1. DENOSUMAB [Suspect]
     Active Substance: DENOSUMAB
     Indication: Metastases to bone
     Dosage: UNK, ONCE EVERY 6 WK
     Route: 058
     Dates: start: 201809
  2. ENHERTU [Suspect]
     Active Substance: FAM-TRASTUZUMAB DERUXTECAN-NXKI
     Indication: HER2 low breast cancer
     Dosage: 5.4 MILLIGRAM/KILOGRAM, Q3WK
     Route: 040
     Dates: start: 20240611, end: 20240814
  3. DOXORUBICIN HYDROCHLORIDE [Suspect]
     Active Substance: DOXORUBICIN HYDROCHLORIDE
     Indication: HER2 low breast cancer
     Dosage: UNK, ONCE EVERY 3 WK (9 COURSES)
     Route: 065
     Dates: start: 20220217, end: 20220907
  4. CYCLOPHOSPHAMIDE [Concomitant]
     Active Substance: CYCLOPHOSPHAMIDE
     Indication: HER2 low breast cancer
     Dosage: UNK, ONCE EVERY 3 WK (9 COURSES)
     Route: 065
     Dates: start: 20220217, end: 20220907

REACTIONS (2)
  - Cardiac dysfunction [Recovering/Resolving]
  - Off label use [Unknown]

NARRATIVE: CASE EVENT DATE: 20180901
